FAERS Safety Report 21945625 (Version 1)
Quarter: 2023Q1

REPORT INFORMATION
  Report Type: Spontaneous
  Country: US (occurrence: US)
  Receive Date: 20230202
  Receipt Date: 20230202
  Transmission Date: 20230418
  Serious: No
  Sender: FDA-Public Use
  Company Number: US-PFIZER INC-PV202300019555

PATIENT
  Age: 78 Year
  Sex: Female

DRUGS (2)
  1. IBRANCE [Suspect]
     Active Substance: PALBOCICLIB
     Indication: Breast cancer stage II
     Dosage: 125 MG DAILY CONSECUTIVE, FOLLOWD BY 7 DAYS OFF FOR A 28 DAY CYCLE
     Route: 048
  2. FASLODEX [Concomitant]
     Active Substance: FULVESTRANT
     Indication: Breast cancer stage II
     Dosage: UNK

REACTIONS (2)
  - Taste disorder [Not Recovered/Not Resolved]
  - Neoplasm progression [Unknown]
